FAERS Safety Report 15641811 (Version 1)
Quarter: 2018Q4

REPORT INFORMATION
  Report Type: Other
  Country: US (occurrence: US)
  Receive Date: 20181121
  Receipt Date: 20181121
  Transmission Date: 20190205
  Serious: Yes (Life-Threatening, Other)
  Sender: FDA-Public Use
  Company Number: US-APPCO PHARMA LLC-2059135

PATIENT
  Age: 4 Month
  Sex: Female

DRUGS (1)
  1. CLINDAMYCIN PALMITATE HYDROCHLORIDE. [Suspect]
     Active Substance: CLINDAMYCIN PALMITATE HYDROCHLORIDE
     Indication: PAROTITIS
     Route: 042

REACTIONS (2)
  - Condition aggravated [Recovered/Resolved]
  - Septic shock [Recovered/Resolved]
